FAERS Safety Report 24068586 (Version 1)
Quarter: 2024Q3

REPORT INFORMATION
  Report Type: Report from Study
  Country: CA (occurrence: CA)
  Receive Date: 20240710
  Receipt Date: 20240710
  Transmission Date: 20241016
  Serious: No
  Sender: ROCHE
  Company Number: CA-ROCHE-3507276

PATIENT
  Age: 48 Year
  Sex: Male

DRUGS (2)
  1. VABYSMO [Suspect]
     Active Substance: FARICIMAB\FARICIMAB-SVOA
     Indication: Diabetic retinal oedema
     Route: 050
     Dates: start: 20240206
  2. OZURDEX [Concomitant]
     Active Substance: DEXAMETHASONE

REACTIONS (1)
  - Vitreous floaters [Unknown]
